FAERS Safety Report 4906253-5 (Version None)
Quarter: 2006Q1

REPORT INFORMATION
  Report Type: 
  Country: None (occurrence: None)
  Receive Date: 20060201
  Receipt Date: 20060119
  Transmission Date: 20060701
  Serious: Yes (Other)
  Sender: FDA-Public Use
  Company Number: 200510603BYL

PATIENT
  Age: 18 Month
  Sex: Male

DRUGS (2)
  1. GAMIMUNE N 5% [Suspect]
     Indication: KAWASAKI'S DISEASE
     Dosage: SEE IMAGE, INTRAVENOUS
     Route: 042
     Dates: start: 20051118, end: 20051119
  2. ASPIRIN [Concomitant]

REACTIONS (3)
  - EPISTAXIS [None]
  - HYPERTENSION [None]
  - INFUSION RELATED REACTION [None]
